FAERS Safety Report 15929065 (Version 5)
Quarter: 2019Q1

REPORT INFORMATION
  Report Type: Report from Study
  Country: DE (occurrence: DE)
  Receive Date: 20190206
  Receipt Date: 20190320
  Transmission Date: 20190417
  Serious: Yes (Death)
  Sender: FDA-Public Use
  Company Number: DE-MYLANLABS-2019M1010555

PATIENT
  Age: 82 Year
  Sex: Female
  Weight: 80 kg

DRUGS (11)
  1. BISOPROLOL [Suspect]
     Active Substance: BISOPROLOL
     Indication: CORONARY ARTERY DISEASE
     Dosage: 3 MG, QD
     Route: 048
     Dates: start: 20180715
  2. VALSARTAN. [Concomitant]
     Active Substance: VALSARTAN
     Indication: ANTICOAGULANT THERAPY
     Dosage: 80 MG, QD
     Route: 048
     Dates: start: 20180715, end: 20180720
  3. DIOVAN [Suspect]
     Active Substance: VALSARTAN
     Indication: ACUTE MYOCARDIAL INFARCTION
     Dosage: NO TREATMENT/CODE NOT BROKEN
     Route: 048
     Dates: start: 20180717
  4. EPLERENONE. [Concomitant]
     Active Substance: EPLERENONE
     Indication: CORONARY ARTERY DISEASE
     Dosage: 25 MG, QD
     Route: 048
     Dates: start: 20180715
  5. SACUBITRIL W/VALSARTAN [Suspect]
     Active Substance: SACUBITRIL\VALSARTAN
     Indication: ACUTE MYOCARDIAL INFARCTION
     Dosage: NO TREATMENT/CODE NOT BROKEN
     Route: 048
     Dates: start: 20180717
  6. ZEBETA [Suspect]
     Active Substance: BISOPROLOL FUMARATE
     Indication: CORONARY ARTERY DISEASE
     Dosage: 3 MILLIGRAM, QD
     Route: 048
     Dates: start: 20180715
  7. TICAGRELOR. [Concomitant]
     Active Substance: TICAGRELOR
     Indication: ANTICOAGULANT THERAPY
     Dosage: 90 MG, BID (180 MILLIGRAM, QD)
     Route: 048
     Dates: start: 20180715
  8. RAMIPRIL. [Suspect]
     Active Substance: RAMIPRIL
     Indication: ACUTE MYOCARDIAL INFARCTION
     Dosage: NO TREATMENT/CODE NOT BROKEN
     Route: 048
     Dates: start: 20180717
  9. TORASEMID [Concomitant]
     Active Substance: TORSEMIDE
     Indication: CORONARY ARTERY DISEASE
     Dosage: 20 MG, QD
     Route: 048
     Dates: start: 20180715
  10. SIMVASTATIN. [Concomitant]
     Active Substance: SIMVASTATIN
     Dosage: 40 MILLIGRAM, QD
     Route: 048
     Dates: start: 20180721
  11. SIMVASTATIN. [Concomitant]
     Active Substance: SIMVASTATIN
     Indication: HYPERLIPIDAEMIA
     Dosage: 40 UNK
     Route: 048
     Dates: start: 20180719, end: 20180721

REACTIONS (1)
  - Bradycardia [Fatal]

NARRATIVE: CASE EVENT DATE: 20180719
